FAERS Safety Report 18656332 (Version 1)
Quarter: 2020Q4

REPORT INFORMATION
  Report Type: Spontaneous
  Country: FR (occurrence: FR)
  Receive Date: 20201223
  Receipt Date: 20201223
  Transmission Date: 20210114
  Serious: Yes (Other)
  Sender: FDA-Public Use
  Company Number: FR-JNJFOC-20201240712

PATIENT
  Age: 50 Year
  Sex: Female
  Weight: 56 kg

DRUGS (1)
  1. SPRAVATO [Suspect]
     Active Substance: ESKETAMINE
     Indication: DEPRESSION
     Dosage: 84 MG/PRISE (11 ADMINISTRATION ESPACEES DE 3 A 5 JOURS)
     Dates: start: 20200514, end: 20200625

REACTIONS (4)
  - Negative thoughts [Recovered/Resolved]
  - Hypoaesthesia [Recovered/Resolved]
  - Hallucination [Recovered/Resolved]
  - Delusional perception [Recovered/Resolved]

NARRATIVE: CASE EVENT DATE: 202005
